FAERS Safety Report 18649328 (Version 2)
Quarter: 2023Q2

REPORT INFORMATION
  Report Type: Spontaneous
  Country: JP (occurrence: JP)
  Receive Date: 20201222
  Receipt Date: 20230501
  Transmission Date: 20230721
  Serious: Yes (Other)
  Sender: FDA-Public Use
  Company Number: JP-ELI_LILLY_AND_COMPANY-JP202012007750

PATIENT
  Age: 47 Year
  Sex: Male
  Weight: 81 kg

DRUGS (2)
  1. CYRAMZA [Suspect]
     Active Substance: RAMUCIRUMAB
     Indication: Lung adenocarcinoma stage IV
     Dosage: 10 MG/KG, CYCLICAL
     Route: 041
  2. DOCETAXEL [Concomitant]
     Active Substance: DOCETAXEL
     Indication: Lung adenocarcinoma stage IV
     Dosage: 60 MG/M2, CYCLICAL

REACTIONS (5)
  - Wound dehiscence [Recovered/Resolved]
  - Impaired healing [Recovered/Resolved]
  - Microcytic anaemia [Unknown]
  - Blood lactate dehydrogenase increased [Unknown]
  - Hypoalbuminaemia [Unknown]
